FAERS Safety Report 5304357-9 (Version None)
Quarter: 2007Q2

REPORT INFORMATION
  Report Type: 
  Country: None (occurrence: None)
  Receive Date: 20070423
  Receipt Date: 20070409
  Transmission Date: 20071010
  Serious: Yes (Hospitalization)
  Sender: FDA-Public Use
  Company Number: JP-ROCHE-484780

PATIENT
  Age: 80 Year
  Sex: Female
  Weight: 55 kg

DRUGS (11)
  1. TAMIFLU [Suspect]
     Indication: INFLUENZA
     Dosage: STOP DATE FOR INITIAL TAMILFU THERAPY AT 150MG DAILY WAS GIVEN AS DEC 2005.
     Route: 048
     Dates: start: 20051223
  2. TAMIFLU [Suspect]
     Route: 048
     Dates: start: 20070220, end: 20070220
  3. TAMIFLU [Suspect]
     Route: 048
     Dates: start: 20070221, end: 20070221
  4. TAMIFLU [Suspect]
     Route: 048
     Dates: start: 20070222, end: 20070222
  5. LORFENAMIN [Suspect]
     Indication: PYREXIA
     Route: 048
     Dates: start: 20051223, end: 20051230
  6. LORFENAMIN [Suspect]
     Dosage: TAKEN AS NEEDED:50MG
     Route: 048
     Dates: start: 20070220, end: 20070222
  7. SOFALCONE [Suspect]
     Indication: GASTRITIS
     Dosage: TRADE NAME WAS REPORTED AS SOLOFAL.
     Route: 048
     Dates: start: 20070220, end: 20070222
  8. OZEX [Suspect]
     Indication: INFLUENZA
     Route: 048
     Dates: start: 20051223, end: 20051230
  9. LASIX [Concomitant]
     Route: 048
     Dates: end: 20070222
  10. EPINASTINE [Concomitant]
     Route: 048
     Dates: end: 20070222
  11. PARIET [Concomitant]
     Route: 048
     Dates: end: 20070222

REACTIONS (3)
  - HEPATIC FUNCTION ABNORMAL [None]
  - PNEUMONIA [None]
  - PNEUMONITIS [None]
